FAERS Safety Report 5509402-3 (Version None)
Quarter: 2007Q4

REPORT INFORMATION
  Report Type: 
  Country: None (occurrence: None)
  Receive Date: 20071107
  Receipt Date: 20071030
  Transmission Date: 20080405
  Serious: Yes (Death, Life-Threatening, Other)
  Sender: FDA-Public Use
  Company Number: US-PFIZER INC-2007091451

PATIENT
  Sex: Male

DRUGS (4)
  1. XANAX [Suspect]
  2. OXYCONTIN [Suspect]
  3. SYMBYAX [Suspect]
  4. ALCOHOL [Suspect]

REACTIONS (4)
  - ALCOHOL USE [None]
  - COMPLETED SUICIDE [None]
  - MULTIPLE DRUG OVERDOSE INTENTIONAL [None]
  - OVERDOSE [None]
